FAERS Safety Report 6070979-3 (Version None)
Quarter: 2009Q1

REPORT INFORMATION
  Report Type: 
  Country: None (occurrence: None)
  Receive Date: 20090209
  Receipt Date: 20090203
  Transmission Date: 20090719
  Serious: Yes (Other)
  Sender: FDA-Public Use
  Company Number: A0766347A

PATIENT
  Age: 49 Year
  Sex: Female

DRUGS (6)
  1. TYKERB [Suspect]
     Indication: BREAST CANCER
     Dosage: 1TAB THREE TIMES PER DAY
     Route: 048
     Dates: start: 20090130
  2. XELODA [Suspect]
     Indication: BREAST CANCER
     Dosage: 3TAB TWICE PER DAY
     Route: 048
     Dates: start: 20090130
  3. UNKNOWN MEDICATION [Concomitant]
  4. DILAUDID [Concomitant]
  5. LASIX [Concomitant]
  6. STOOL SOFTENER [Concomitant]

REACTIONS (10)
  - CHROMATURIA [None]
  - CONDITION AGGRAVATED [None]
  - DYSPNOEA [None]
  - FATIGUE [None]
  - HEPATIC PAIN [None]
  - ILL-DEFINED DISORDER [None]
  - JAUNDICE [None]
  - OCULAR ICTERUS [None]
  - PRURITUS [None]
  - YELLOW SKIN [None]
